FAERS Safety Report 22075678 (Version 1)
Quarter: 2023Q1

REPORT INFORMATION
  Report Type: Other
  Country: None (occurrence: US)
  Receive Date: 20230308
  Receipt Date: 20230308
  Transmission Date: 20230418
  Serious: Yes (Death)
  Sender: FDA-Public Use
  Company Number: US-B.Braun Medical Inc.-2138848

PATIENT
  Age: 65 Year
  Sex: Female

DRUGS (1)
  1. NUTRILIPID I.V. FAT EMULSION [Suspect]
     Active Substance: SOYBEAN OIL

REACTIONS (11)
  - Medication error [Fatal]
  - Hypertension [Fatal]
  - Tachycardia [Fatal]
  - Bradycardia [Fatal]
  - Metabolic acidosis [Fatal]
  - Anion gap [Fatal]
  - Hepatotoxicity [Fatal]
  - Haemolysis [Fatal]
  - Coagulopathy [Fatal]
  - Thrombocytopenia [Fatal]
  - Acute kidney injury [Fatal]
